FAERS Safety Report 8163480 (Version 3)
Quarter: 2012Q4

REPORT INFORMATION
  Report Type: 
  Country: NO (occurrence: NO)
  Receive Date: 20110930
  Receipt Date: 20120829
  Transmission Date: 20130627
  Serious: Yes (Death, Hospitalization)
  Sender: FDA-Public Use
  Company Number: NO-B.I. PHARMACEUTICALS,INC./RIDGEFIELD-2011-SW-00380NO

PATIENT
  Age: 79 Year
  Sex: Female
  Weight: 63 kg

DRUGS (9)
  1. PRADAXA [Suspect]
     Indication: ATRIAL FIBRILLATION
     Dosage: 220 mg
     Dates: start: 20110726, end: 20110903
  2. METOPROLOL [Concomitant]
     Indication: PROPHYLAXIS
     Dosage: 200 mg
     Route: 048
  3. METOPROLOL [Concomitant]
     Indication: BLOOD PRESSURE
  4. METOPROLOL [Concomitant]
     Indication: CARDIAC DISORDER
  5. SIMVASTATIN [Concomitant]
     Indication: CARDIOVASCULAR EVENT PROPHYLAXIS
     Dosage: 40 mg
     Route: 048
     Dates: start: 20081026
  6. BURINEX [Concomitant]
     Indication: RENAL IMPAIRMENT
     Dosage: 1 mg
     Route: 048
     Dates: start: 20110702
  7. DIGITOXIN [Concomitant]
     Indication: CARDIAC FAILURE
     Dosage: 50 mcg
     Dates: start: 201103
  8. ALBYL-E [Concomitant]
     Indication: THROMBOSIS PROPHYLAXIS
     Dates: start: 19960429, end: 19980610
  9. ALBYL-E [Concomitant]
     Dosage: 75 mg
     Dates: start: 19980611, end: 201103

REACTIONS (1)
  - Cerebral haemorrhage [Fatal]
